FAERS Safety Report 4288368-0 (Version None)
Quarter: 2004Q1

REPORT INFORMATION
  Report Type: 
  Country: None (occurrence: None)
  Receive Date: 20040209
  Receipt Date: 20030919
  Transmission Date: 20041129
  Serious: No
  Sender: FDA-Public Use
  Company Number: US-GLAXOSMITHKLINE-A0426610A

PATIENT
  Sex: Male

DRUGS (1)
  1. PAXIL [Suspect]

REACTIONS (3)
  - 5-HYDROXYINDOLACETIC ACID IN URINE INCREASED [None]
  - RENIN INCREASED [None]
  - VANILLYL MANDELIC ACID URINE INCREASED [None]
